FAERS Safety Report 25049797 (Version 1)
Quarter: 2025Q1

REPORT INFORMATION
  Report Type: Spontaneous
  Country: PT (occurrence: PT)
  Receive Date: 20250307
  Receipt Date: 20250307
  Transmission Date: 20250408
  Serious: Yes (Other)
  Sender: RANBAXY
  Company Number: PT-SUN PHARMACEUTICAL INDUSTRIES LTD-2025R1-497365

PATIENT
  Age: 54 Year
  Sex: Female

DRUGS (3)
  1. CLOBETASOL [Suspect]
     Active Substance: CLOBETASOL
     Indication: Folliculitis
     Route: 065
  2. PREDNISOLONE [Suspect]
     Active Substance: PREDNISOLONE
     Indication: Rheumatoid arthritis
     Dosage: 12.5 MILLIGRAM, DAILY
     Route: 065
  3. SULFASALAZINE [Suspect]
     Active Substance: SULFASALAZINE
     Indication: Rheumatoid arthritis
     Route: 065

REACTIONS (2)
  - Therapeutic response decreased [Unknown]
  - Hepatotoxicity [Unknown]
